FAERS Safety Report 5012179-1 (Version None)
Quarter: 2006Q2

REPORT INFORMATION
  Report Type: 
  Country: None (occurrence: None)
  Receive Date: 20060524
  Receipt Date: 20060516
  Transmission Date: 20061013
  Serious: Yes (Hospitalization)
  Sender: FDA-Public Use
  Company Number: 060083

PATIENT
  Age: 79 Year
  Sex: Male
  Weight: 78.4723 kg

DRUGS (4)
  1. HALFLYTELY [Suspect]
     Indication: COLONOSCOPY
     Dosage: 20 MG, 1X, PO, 6 WEEKS AGO
     Route: 048
  2. HYDROCHLOROTHIAZIDE [Concomitant]
  3. SYNTHROID [Concomitant]
  4. LISINOPRIL [Concomitant]

REACTIONS (6)
  - ABDOMINAL PAIN [None]
  - DYSPNOEA [None]
  - FLUSHING [None]
  - GASTROINTESTINAL DISORDER [None]
  - INCOHERENT [None]
  - RECTAL HAEMORRHAGE [None]
